FAERS Safety Report 13264614 (Version 1)
Quarter: 2017Q1

REPORT INFORMATION
  Report Type: Spontaneous
  Country: BR (occurrence: BR)
  Receive Date: 20170223
  Receipt Date: 20170223
  Transmission Date: 20170428
  Serious: Yes (Hospitalization, Other)
  Sender: FDA-Public Use
  Company Number: BR-ALEXION-A201701665

PATIENT
  Age: 1 Year
  Sex: Female
  Weight: 9.7 kg

DRUGS (2)
  1. SOLIRIS [Suspect]
     Active Substance: ECULIZUMAB
     Indication: HAEMOLYTIC URAEMIC SYNDROME
     Dosage: 300 MG, Q3W
     Route: 065
     Dates: start: 201611
  2. SOLIRIS [Suspect]
     Active Substance: ECULIZUMAB
     Dosage: 300 MG, Q2W
     Route: 065

REACTIONS (8)
  - Haemolysis [Unknown]
  - Thrombocytopenia [Unknown]
  - Pneumonia [Unknown]
  - Acute pulmonary oedema [Unknown]
  - Swelling [Unknown]
  - Blood lactate dehydrogenase increased [Unknown]
  - Hypertensive crisis [Unknown]
  - Infection [Unknown]
